FAERS Safety Report 17094156 (Version 1)
Quarter: 2019Q4

REPORT INFORMATION
  Report Type: Spontaneous
  Country: FR (occurrence: FR)
  Receive Date: 20191129
  Receipt Date: 20191129
  Transmission Date: 20200122
  Serious: Yes (Other)
  Sender: FDA-Public Use
  Company Number: NVSC2019FR047746

PATIENT
  Age: 68 Year
  Sex: Female
  Weight: 59 kg

DRUGS (5)
  1. AZITHROMYCIN ANHYDROUS. [Suspect]
     Active Substance: AZITHROMYCIN ANHYDROUS
     Indication: MYCOBACTERIAL INFECTION
     Dosage: 500 MG, QD
     Route: 042
     Dates: start: 20180124, end: 20190120
  2. TIGECYCLINE. [Suspect]
     Active Substance: TIGECYCLINE
     Indication: MYCOBACTERIAL INFECTION
     Dosage: 100 MG, QD
     Route: 042
     Dates: start: 20180124, end: 20180306
  3. AMIKLIN [Concomitant]
     Active Substance: AMIKACIN SULFATE
     Indication: MYCOBACTERIAL INFECTION
     Dosage: UNK (INCONNUE)
     Route: 042
     Dates: start: 20180124, end: 20180306
  4. LAMPRENE [Suspect]
     Active Substance: CLOFAZIMINE
     Indication: MYCOBACTERIAL INFECTION
     Dosage: 1 DF, QD
     Route: 048
     Dates: start: 20180124, end: 20190120
  5. CEFOXITIN [Suspect]
     Active Substance: CEFOXITIN SODIUM
     Indication: MYCOBACTERIAL INFECTION
     Dosage: 12 G, QD
     Route: 042
     Dates: start: 20180215, end: 20180306

REACTIONS (1)
  - Hypoacusis [Recovered/Resolved]

NARRATIVE: CASE EVENT DATE: 201803
